FAERS Safety Report 14353419 (Version 1)
Quarter: 2018Q1

REPORT INFORMATION
  Report Type: Report from Study
  Country: US (occurrence: US)
  Receive Date: 20180105
  Receipt Date: 20180105
  Transmission Date: 20180509
  Serious: No
  Sender: FDA-Public Use
  Company Number: US-AMGEN-USASL2018000347

PATIENT
  Age: 5 Year
  Sex: Male

DRUGS (1)
  1. ENBREL [Suspect]
     Active Substance: ETANERCEPT
     Indication: JUVENILE IDIOPATHIC ARTHRITIS
     Dosage: UNK
     Route: 065

REACTIONS (7)
  - Fall [Recovering/Resolving]
  - Cough [Recovering/Resolving]
  - Impaired healing [Recovering/Resolving]
  - Malaise [Recovering/Resolving]
  - Erythema [Recovering/Resolving]
  - Contusion [Recovering/Resolving]
  - Face injury [Recovering/Resolving]

NARRATIVE: CASE EVENT DATE: 201712
